FAERS Safety Report 18672714 (Version 1)
Quarter: 2020Q4

REPORT INFORMATION
  Report Type: Spontaneous
  Country: US (occurrence: US)
  Receive Date: 20201228
  Receipt Date: 20201228
  Transmission Date: 20210114
  Serious: Yes (Other)
  Sender: FDA-Public Use
  Company Number: US-AMNEAL PHARMACEUTICALS-2020-AMRX-02803

PATIENT
  Sex: Male

DRUGS (1)
  1. TIAGABINE HYDROCHLORIDE. [Suspect]
     Active Substance: TIAGABINE HYDROCHLORIDE
     Indication: SEIZURE
     Dosage: UNK
     Route: 048

REACTIONS (3)
  - Product colour issue [Unknown]
  - Product substitution issue [Unknown]
  - Seizure [Unknown]
